FAERS Safety Report 13177569 (Version 2)
Quarter: 2017Q3

REPORT INFORMATION
  Report Type: Report from Study
  Country: US (occurrence: US)
  Receive Date: 20170201
  Receipt Date: 20170731
  Transmission Date: 20171127
  Serious: No
  Sender: FDA-Public Use
  Company Number: US-EXELIXIS-CABO-16006552

PATIENT
  Sex: Female

DRUGS (12)
  1. VITAMIN K [Concomitant]
     Active Substance: PHYTONADIONE
  2. CABOMETYX [Suspect]
     Active Substance: CABOZANTINIB S-MALATE
     Indication: RENAL CANCER
     Dosage: 60 MG, QD
     Route: 048
     Dates: start: 20160518
  3. LEVOTHYROXINE. [Concomitant]
     Active Substance: LEVOTHYROXINE
  4. VITAMIN B6 [Concomitant]
     Active Substance: PYRIDOXINE HYDROCHLORIDE
  5. ENOXAPARIN [Concomitant]
     Active Substance: ENOXAPARIN
  6. POTASSIUM [Concomitant]
     Active Substance: POTASSIUM
  7. BENICAR [Concomitant]
     Active Substance: OLMESARTAN MEDOXOMIL
  8. NORVASC [Concomitant]
     Active Substance: AMLODIPINE BESYLATE
  9. FOLIC ACID. [Concomitant]
     Active Substance: FOLIC ACID
  10. VITAMIN D [Concomitant]
     Active Substance: CHOLECALCIFEROL
  11. ATENOLOL. [Concomitant]
     Active Substance: ATENOLOL
  12. PANTOPRAZOLE [Concomitant]
     Active Substance: PANTOPRAZOLE

REACTIONS (3)
  - Palmar-plantar erythrodysaesthesia syndrome [Not Recovered/Not Resolved]
  - Alopecia [Unknown]
  - Diarrhoea [Not Recovered/Not Resolved]
